FAERS Safety Report 15410288 (Version 2)
Quarter: 2018Q4

REPORT INFORMATION
  Report Type: Spontaneous
  Country: SE (occurrence: SE)
  Receive Date: 20180921
  Receipt Date: 20181005
  Transmission Date: 20190204
  Serious: Yes (Other)
  Sender: FDA-Public Use
  Company Number: PHHY2018SE100765

PATIENT
  Age: 71 Year
  Sex: Male

DRUGS (1)
  1. METHOTREXATE. [Suspect]
     Active Substance: METHOTREXATE
     Indication: PSORIASIS
     Dosage: UNK
     Route: 065

REACTIONS (4)
  - Hepatic cirrhosis [Unknown]
  - Splenomegaly [Unknown]
  - Portal vein dilatation [Unknown]
  - Portal hypertension [Unknown]
